FAERS Safety Report 19150849 (Version 1)
Quarter: 2021Q2

REPORT INFORMATION
  Report Type: Spontaneous
  Country: CA (occurrence: CA)
  Receive Date: 20210419
  Receipt Date: 20210419
  Transmission Date: 20210717
  Serious: Yes (Hospitalization)
  Sender: FDA-Public Use
  Company Number: CA-JNJFOC-20201107374

PATIENT
  Age: 47 Year
  Sex: Female
  Weight: 111 kg

DRUGS (10)
  1. REMICADE [Suspect]
     Active Substance: INFLIXIMAB
     Indication: COLITIS ULCERATIVE
     Route: 042
  2. AZATHIOPRINE. [Concomitant]
     Active Substance: AZATHIOPRINE
  3. MESALAMINE. [Concomitant]
     Active Substance: MESALAMINE
  4. MESALAZINE [Concomitant]
     Active Substance: MESALAMINE
     Route: 048
  5. BUDESONIDE. [Concomitant]
     Active Substance: BUDESONIDE
     Route: 048
  6. INFLIXIMAB [Suspect]
     Active Substance: INFLIXIMAB
     Indication: COLITIS ULCERATIVE
     Route: 042
  7. IBUPROFEN. [Concomitant]
     Active Substance: IBUPROFEN
  8. REMICADE [Suspect]
     Active Substance: INFLIXIMAB
     Indication: RHEUMATOID ARTHRITIS
  9. PREDNISONE. [Concomitant]
     Active Substance: PREDNISONE
     Route: 065
  10. PENTASA [Concomitant]
     Active Substance: MESALAMINE
     Route: 065

REACTIONS (10)
  - Intentional product use issue [Unknown]
  - Condition aggravated [Unknown]
  - Weight decreased [Unknown]
  - Dizziness [Unknown]
  - Somnolence [Unknown]
  - Off label use [Unknown]
  - Oxygen saturation abnormal [Unknown]
  - Asthenia [Unknown]
  - Therapeutic response shortened [Unknown]
  - Fatigue [Unknown]
